FAERS Safety Report 8911825 (Version 2)
Quarter: 2015Q3

REPORT INFORMATION
  Report Type: Spontaneous
  Country: US (occurrence: US)
  Receive Date: 20121115
  Receipt Date: 20150817
  Transmission Date: 20151125
  Serious: Yes (Hospitalization, Other)
  Sender: FDA-Public Use
  Company Number: US-GLAXOSMITHKLINE-A1001088A

PATIENT
  Sex: Male

DRUGS (6)
  1. HYDROCODONE [Concomitant]
     Active Substance: HYDROCODONE
  2. OXYCODONE [Concomitant]
     Active Substance: OXYCODONE
  3. VOTRIENT [Suspect]
     Active Substance: PAZOPANIB HYDROCHLORIDE
     Indication: RENAL CANCER
     Dosage: 400MG TWICE A DAY AND EVERY OTHER DAY TAKE 600 MG TWICE A DAY
     Route: 048
  4. PANTOPRAZOLE [Concomitant]
     Active Substance: PANTOPRAZOLE SODIUM
  5. METOPROLOL [Concomitant]
     Active Substance: METOPROLOL
  6. VOTRIENT [Suspect]
     Active Substance: PAZOPANIB HYDROCHLORIDE
     Indication: NEOPLASM MALIGNANT
     Dosage: 200 MG TABLET
     Route: 048
     Dates: start: 20140624

REACTIONS (2)
  - Lung infection [Unknown]
  - Hospitalisation [Unknown]
